FAERS Safety Report 13484916 (Version 2)
Quarter: 2017Q2

REPORT INFORMATION
  Report Type: Spontaneous
  Country: US (occurrence: US)
  Receive Date: 20170426
  Receipt Date: 20170606
  Transmission Date: 20170830
  Serious: No
  Sender: FDA-Public Use
  Company Number: US-PFIZER INC-2017181525

PATIENT
  Sex: Female

DRUGS (4)
  1. LIPITOR [Suspect]
     Active Substance: ATORVASTATIN CALCIUM
     Dosage: UNK
  2. AMLODIPINE BESILATE [Suspect]
     Active Substance: AMLODIPINE BESYLATE
     Dosage: UNK
  3. FORMALDEHYDE. [Suspect]
     Active Substance: FORMALDEHYDE
     Dosage: UNK
  4. BENCYCLANE FUMARATE [Suspect]
     Active Substance: BENCYCLANE FUMARATE
     Dosage: UNK

REACTIONS (1)
  - Drug hypersensitivity [Unknown]
